FAERS Safety Report 10764879 (Version 1)
Quarter: 2015Q1

REPORT INFORMATION
  Report Type: Spontaneous
  Country: US (occurrence: None)
  Receive Date: 20150204
  Receipt Date: 20150204
  Transmission Date: 20150721
  Serious: No
  Sender: FDA-Public Use
  Company Number: None

PATIENT

DRUGS (3)
  1. CEFEPIME [Suspect]
     Active Substance: CEFEPIME\CEFEPIME HYDROCHLORIDE
     Dosage: DOSAGE FORM: INJECTABLE, ADM ROUTE: IV OR IM USE AFTER C, STRENGTH: 1 GRAM, TYPE: VIAL?
  2. CEFTAZIDIME. [Suspect]
     Active Substance: CEFTAZIDIME
     Dosage: DOSAGE FORM: INJECTABLE, ADM ROUTE: INTRAVENOUS OR INTR, STRENGTH: 1 G PER VIAL, TYPE: VIAL
     Route: 042
  3. MEROPENEM. [Suspect]
     Active Substance: MEROPENEM
     Dosage: DOSAGE FORM: INJECTABLE, ADM ROUTE: INTRAVENOUS USE ONLY, STRENGTH: 500 MG PER VIAL, TYPE: VIAL
     Route: 042

REACTIONS (2)
  - Product label confusion [None]
  - Circumstance or information capable of leading to medication error [None]
